FAERS Safety Report 11878923 (Version 1)
Quarter: 2015Q4

REPORT INFORMATION
  Report Type: Report from Study
  Country: US (occurrence: US)
  Receive Date: 20151230
  Receipt Date: 20151230
  Transmission Date: 20160305
  Serious: Yes (Other)
  Sender: FDA-Public Use
  Company Number: US-BAYER-2015-436911

PATIENT
  Age: 48 Year
  Sex: Female

DRUGS (1)
  1. STIVARGA [Suspect]
     Active Substance: REGORAFENIB
     Indication: COLON CANCER
     Dosage: 160 MG, QD
     Route: 048
     Dates: start: 20150916, end: 201509

REACTIONS (5)
  - Headache [Unknown]
  - Headache [Recovered/Resolved]
  - Erythema [Unknown]
  - Speech disorder [Recovered/Resolved]
  - Dysarthria [Unknown]

NARRATIVE: CASE EVENT DATE: 201509
